FAERS Safety Report 8082358-8 (Version None)
Quarter: 2012Q1

REPORT INFORMATION
  Report Type: 
  Country: None (occurrence: None)
  Receive Date: 20120127
  Receipt Date: 20110216
  Transmission Date: 20120608
  Serious: No
  Sender: FDA-Public Use
  Company Number: US-ABBOTT-11P-163-0705957-00

PATIENT
  Age: 68 Year
  Sex: Female

DRUGS (19)
  1. HUMIRA [Suspect]
     Indication: RHEUMATOID ARTHRITIS
     Dates: start: 20110127
  2. PREDNISONE TAB [Concomitant]
     Indication: PRODUCT USED FOR UNKNOWN INDICATION
     Dosage: TAPER
  3. NIFEDIPINE [Concomitant]
     Indication: HYPERTENSION
  4. VITAMIN B COMPLEX CAP [Concomitant]
     Indication: PRODUCT USED FOR UNKNOWN INDICATION
  5. CALCIUM [Concomitant]
     Indication: PRODUCT USED FOR UNKNOWN INDICATION
  6. FLOVENT [Concomitant]
     Indication: PRODUCT USED FOR UNKNOWN INDICATION
     Dosage: 1-2 PUFFS
  7. CLOTRIMAZOLE [Concomitant]
     Indication: PRODUCT USED FOR UNKNOWN INDICATION
     Dosage: UNDER TONGUE
  8. NASONEX [Concomitant]
     Indication: PRODUCT USED FOR UNKNOWN INDICATION
  9. LORAZEPAM [Concomitant]
     Indication: STRESS
     Dosage: 0.5 MG TID PRN
  10. DIOVAN [Concomitant]
     Indication: HYPERTENSION
     Dosage: 320/25 MG
  11. FLOVENT [Concomitant]
     Dosage: 2-4 PUFFS
  12. SALINE [Concomitant]
     Indication: PRODUCT USED FOR UNKNOWN INDICATION
     Route: 045
  13. LORATADINE [Concomitant]
     Indication: SEASONAL ALLERGY
  14. ALBUTEROL [Concomitant]
     Indication: ASTHMA
  15. MUCINEX MS [Concomitant]
     Indication: PRODUCT USED FOR UNKNOWN INDICATION
  16. ALBUTEROL [Concomitant]
     Indication: ASTHMA
  17. PANTOPRAZOLE [Concomitant]
     Indication: PRODUCT USED FOR UNKNOWN INDICATION
  18. SINGULAIR [Concomitant]
     Indication: PRODUCT USED FOR UNKNOWN INDICATION
  19. ASCORBIC ACID [Concomitant]
     Indication: PRODUCT USED FOR UNKNOWN INDICATION

REACTIONS (2)
  - INJECTION SITE HAEMATOMA [None]
  - INJECTION SITE ERYTHEMA [None]
